FAERS Safety Report 9326352 (Version 1)
Quarter: 2013Q2

REPORT INFORMATION
  Report Type: Spontaneous
  Country: US (occurrence: US)
  Receive Date: 20130604
  Receipt Date: 20130604
  Transmission Date: 20140414
  Serious: No
  Sender: FDA-Public Use
  Company Number: US-TEVA-409205USA

PATIENT
  Sex: Male
  Weight: 86.26 kg

DRUGS (4)
  1. PROAIR HFA [Suspect]
     Indication: WHEEZING
  2. ASPIRIN (E.C.) [Concomitant]
     Dosage: 81 MILLIGRAM DAILY;
  3. PRAZOSIN [Concomitant]
     Indication: PROSTATIC DISORDER
  4. FINASTERIDE [Interacting]
     Indication: PROSTATIC DISORDER

REACTIONS (2)
  - Drug ineffective [Not Recovered/Not Resolved]
  - Drug administration error [Unknown]
